FAERS Safety Report 20197318 (Version 7)
Quarter: 2022Q3

REPORT INFORMATION
  Report Type: Other
  Country: CA (occurrence: None)
  Receive Date: 20211217
  Receipt Date: 20220921
  Transmission Date: 20221027
  Serious: Yes (Hospitalization)
  Sender: FDA-Public Use
  Company Number: CA-ROCHE-2978534

PATIENT
  Age: 50 Year
  Sex: Female

DRUGS (6)
  1. OCREVUS [Suspect]
     Active Substance: OCRELIZUMAB
     Indication: Relapsing-remitting multiple sclerosis
     Dosage: MORE DOSAGE INFORMATION IS 300 MG AT DAY 0 AND 14, THEN 600 MG EVERY 6 MONTH
     Route: 042
     Dates: start: 20210225
  2. LEVETIRACETAM [Concomitant]
     Active Substance: LEVETIRACETAM
  3. PREGABALIN [Concomitant]
     Active Substance: PREGABALIN
  4. PREGABALIN [Concomitant]
     Active Substance: PREGABALIN
  5. MYRBETRIQ [Concomitant]
     Active Substance: MIRABEGRON
  6. BACLOFEN [Concomitant]
     Active Substance: BACLOFEN

REACTIONS (1)
  - COVID-19 [Recovered/Resolved]

NARRATIVE: CASE EVENT DATE: 20211001
